FAERS Safety Report 4548200-4 (Version None)
Quarter: 2004Q4

REPORT INFORMATION
  Report Type: 
  Country: None (occurrence: None)
  Receive Date: 20041227
  Receipt Date: 20040930
  Transmission Date: 20050328
  Serious: No
  Sender: FDA-Public Use
  Company Number: 04P-163-0275319-00

PATIENT
  Age: 56 Year
  Sex: Female
  Weight: 79.8331 kg

DRUGS (6)
  1. HUMIRA [Suspect]
     Indication: RHEUMATOID ARTHRITIS
     Dosage: 40 MG, 1 IN 2 WK, SUBCUTANEOUS
     Route: 058
     Dates: start: 20030101, end: 20040814
  2. KARVEA HCT [Concomitant]
  3. ATORVASTATIN [Concomitant]
  4. ESTROGENS [Concomitant]
  5. HYDROXYCHLOROQUINE PHOSPHATE [Concomitant]
  6. METHOTREXATE [Concomitant]

REACTIONS (5)
  - ASTHMA [None]
  - BRONCHITIS [None]
  - CHILLS [None]
  - NASOPHARYNGITIS [None]
  - PYREXIA [None]
